FAERS Safety Report 9678915 (Version 9)
Quarter: 2015Q3

REPORT INFORMATION
  Report Type: Spontaneous
  Country: US (occurrence: US)
  Receive Date: 20131108
  Receipt Date: 20150707
  Transmission Date: 20151125
  Serious: Yes (Hospitalization, Disabling, Other)
  Sender: FDA-Public Use
  Company Number: US-009507513-1206USA04846

PATIENT
  Sex: Male

DRUGS (5)
  1. FOSAMAX [Suspect]
     Active Substance: ALENDRONATE SODIUM
     Dosage: 70 MG, QW
     Route: 048
     Dates: start: 200801, end: 201110
  2. FOSAMAX [Suspect]
     Active Substance: ALENDRONATE SODIUM
     Indication: OSTEOPOROSIS
     Dosage: UNK, QW
     Route: 048
  3. FOSAMAX [Suspect]
     Active Substance: ALENDRONATE SODIUM
     Indication: OSTEOPOROSIS
     Dosage: UNK, QW
     Route: 048
  4. ALENDRONATE SODIUM. [Suspect]
     Active Substance: ALENDRONATE SODIUM
     Dosage: 70 MG, QW
  5. FOSAMAX [Suspect]
     Active Substance: ALENDRONATE SODIUM
     Indication: OSTEOPOROSIS PROPHYLAXIS

REACTIONS (55)
  - Femur fracture [Unknown]
  - Hip arthroplasty [Unknown]
  - Internal fixation of fracture [Unknown]
  - Arteriosclerosis [Unknown]
  - Post procedural constipation [Unknown]
  - Macular degeneration [Unknown]
  - Intervertebral disc degeneration [Unknown]
  - Inguinal hernia [Unknown]
  - Paraesthesia [Unknown]
  - Prostate cancer [Unknown]
  - Myocardial infarction [Unknown]
  - Cardiac pacemaker insertion [Unknown]
  - Low turnover osteopathy [Unknown]
  - Hypertension [Unknown]
  - Dysuria [Unknown]
  - Osteochondrosis [Unknown]
  - Aortic dilatation [Unknown]
  - Osteoarthritis [Unknown]
  - Coronary arterial stent insertion [Unknown]
  - Sinus node dysfunction [Unknown]
  - Gravitational oedema [Unknown]
  - Femoral neck fracture [Unknown]
  - Surgery [Unknown]
  - Spinal fracture [Unknown]
  - Procedural nausea [Unknown]
  - Pubis fracture [Unknown]
  - Vitamin D decreased [Unknown]
  - Femoral neck fracture [Unknown]
  - Hip arthroplasty [Unknown]
  - Skin cancer [Unknown]
  - Hypercholesterolaemia [Unknown]
  - Spinal osteoarthritis [Unknown]
  - Diverticulum intestinal [Unknown]
  - Fall [Unknown]
  - Benign prostatic hyperplasia [Unknown]
  - Spinal fracture [Unknown]
  - Muscle spasms [Unknown]
  - Femur fracture [Unknown]
  - Internal fixation of fracture [Unknown]
  - Anaemia postoperative [Unknown]
  - Insomnia [Unknown]
  - Urinary tract obstruction [Unknown]
  - Blood albumin decreased [Unknown]
  - Aortic arteriosclerosis [Unknown]
  - Vertebroplasty [Recovered/Resolved with Sequelae]
  - Lumbar spinal stenosis [Unknown]
  - Prostatectomy [Unknown]
  - Osteopenia [Unknown]
  - Kyphosis [Unknown]
  - Hypokalaemia [Recovered/Resolved]
  - Depression [Unknown]
  - Osteoarthritis [Unknown]
  - Spondylolisthesis [Unknown]
  - Osteosclerosis [Unknown]
  - Intervertebral disc protrusion [Unknown]

NARRATIVE: CASE EVENT DATE: 1998
